FAERS Safety Report 7402113-9 (Version None)
Quarter: 2011Q1

REPORT INFORMATION
  Report Type: 
  Country: None (occurrence: None)
  Receive Date: 20110331
  Receipt Date: 20110321
  Transmission Date: 20110831
  Serious: Yes (Hospitalization)
  Sender: FDA-Public Use
  Company Number: 800968

PATIENT
  Age: 70 Year
  Sex: Female

DRUGS (4)
  1. IRINOTECAN HYDROCHLORIDE [Suspect]
     Indication: COLON CANCER
     Dosage: 100 MG MILLIGRAM(S), CYCLIC, INTRAVENOUS (NOT OTHERWISE SPECIFIED)
     Route: 042
     Dates: start: 20101007, end: 20101028
  2. ERBITUX [Suspect]
     Indication: COLON CANCER
     Dosage: 220 MG MILLIGRAM(S), CYCLIC, INTRAVENOUS (NOT OTHERWISE SPECIFIED)
     Route: 042
     Dates: start: 20101007, end: 20101028
  3. (TRIMETON /00072502/) [Concomitant]
  4. (URBASON /00049601/) [Concomitant]

REACTIONS (7)
  - C-REACTIVE PROTEIN INCREASED [None]
  - ENTEROCUTANEOUS FISTULA [None]
  - PYREXIA [None]
  - BLOOD POTASSIUM DECREASED [None]
  - DIARRHOEA [None]
  - ABDOMINAL ABSCESS [None]
  - RED BLOOD CELL COUNT DECREASED [None]
